FAERS Safety Report 25462835 (Version 2)
Quarter: 2025Q3

REPORT INFORMATION
  Report Type: Spontaneous
  Country: EU (occurrence: EU)
  Receive Date: 20250620
  Receipt Date: 20250702
  Transmission Date: 20251020
  Serious: Yes (Hospitalization)
  Sender: MYLAN
  Company Number: EU-SANDOZ-SDZ2025DE039752

PATIENT
  Sex: Female

DRUGS (40)
  1. METHOTREXATE [Suspect]
     Active Substance: METHOTREXATE
     Indication: Axial spondyloarthritis
     Dates: start: 20220104, end: 20221113
  2. METHOTREXATE [Suspect]
     Active Substance: METHOTREXATE
     Route: 058
     Dates: start: 20220104, end: 20221113
  3. METHOTREXATE [Suspect]
     Active Substance: METHOTREXATE
     Route: 058
     Dates: start: 20220104, end: 20221113
  4. METHOTREXATE [Suspect]
     Active Substance: METHOTREXATE
     Dates: start: 20220104, end: 20221113
  5. DICLOFENAC [Suspect]
     Active Substance: DICLOFENAC
     Indication: Axial spondyloarthritis
     Dates: start: 20170101, end: 20220104
  6. DICLOFENAC [Suspect]
     Active Substance: DICLOFENAC
     Dates: start: 20170101, end: 20220104
  7. DICLOFENAC [Suspect]
     Active Substance: DICLOFENAC
     Route: 065
     Dates: start: 20170101, end: 20220104
  8. DICLOFENAC [Suspect]
     Active Substance: DICLOFENAC
     Route: 065
     Dates: start: 20170101, end: 20220104
  9. DICLOFENAC [Suspect]
     Active Substance: DICLOFENAC
  10. DICLOFENAC [Suspect]
     Active Substance: DICLOFENAC
  11. DICLOFENAC [Suspect]
     Active Substance: DICLOFENAC
     Route: 065
  12. DICLOFENAC [Suspect]
     Active Substance: DICLOFENAC
     Route: 065
  13. IBUPROFEN [Suspect]
     Active Substance: IBUPROFEN
     Indication: Axial spondyloarthritis
     Dates: start: 20220104, end: 20240213
  14. IBUPROFEN [Suspect]
     Active Substance: IBUPROFEN
     Route: 065
     Dates: start: 20220104, end: 20240213
  15. IBUPROFEN [Suspect]
     Active Substance: IBUPROFEN
     Route: 065
     Dates: start: 20220104, end: 20240213
  16. IBUPROFEN [Suspect]
     Active Substance: IBUPROFEN
     Dates: start: 20220104, end: 20240213
  17. COSENTYX [Suspect]
     Active Substance: SECUKINUMAB
     Indication: Axial spondyloarthritis
     Dates: start: 20181129, end: 20190401
  18. COSENTYX [Suspect]
     Active Substance: SECUKINUMAB
     Route: 065
     Dates: start: 20181129, end: 20190401
  19. COSENTYX [Suspect]
     Active Substance: SECUKINUMAB
     Route: 065
     Dates: start: 20181129, end: 20190401
  20. COSENTYX [Suspect]
     Active Substance: SECUKINUMAB
     Dates: start: 20181129, end: 20190401
  21. ETANERCEPT [Suspect]
     Active Substance: ETANERCEPT
     Indication: Axial spondyloarthritis
     Dates: start: 20190401, end: 20200201
  22. ETANERCEPT [Suspect]
     Active Substance: ETANERCEPT
     Route: 065
     Dates: start: 20190401, end: 20200201
  23. ETANERCEPT [Suspect]
     Active Substance: ETANERCEPT
     Route: 065
     Dates: start: 20190401, end: 20200201
  24. ETANERCEPT [Suspect]
     Active Substance: ETANERCEPT
     Dates: start: 20190401, end: 20200201
  25. REMICADE [Suspect]
     Active Substance: INFLIXIMAB
     Indication: Axial spondyloarthritis
     Dates: start: 20200315, end: 20210503
  26. REMICADE [Suspect]
     Active Substance: INFLIXIMAB
     Route: 065
     Dates: start: 20200315, end: 20210503
  27. REMICADE [Suspect]
     Active Substance: INFLIXIMAB
     Route: 065
     Dates: start: 20200315, end: 20210503
  28. REMICADE [Suspect]
     Active Substance: INFLIXIMAB
     Dates: start: 20200315, end: 20210503
  29. ADALIMUMAB [Suspect]
     Active Substance: ADALIMUMAB
     Indication: Axial spondyloarthritis
     Dates: start: 20210527, end: 20220104
  30. ADALIMUMAB [Suspect]
     Active Substance: ADALIMUMAB
     Route: 065
     Dates: start: 20210527, end: 20220104
  31. ADALIMUMAB [Suspect]
     Active Substance: ADALIMUMAB
     Route: 065
     Dates: start: 20210527, end: 20220104
  32. ADALIMUMAB [Suspect]
     Active Substance: ADALIMUMAB
     Dates: start: 20210527, end: 20220104
  33. RINVOQ [Suspect]
     Active Substance: UPADACITINIB
     Indication: Axial spondyloarthritis
     Dates: start: 20220201, end: 20220607
  34. RINVOQ [Suspect]
     Active Substance: UPADACITINIB
     Route: 065
     Dates: start: 20220201, end: 20220607
  35. RINVOQ [Suspect]
     Active Substance: UPADACITINIB
     Route: 065
     Dates: start: 20220201, end: 20220607
  36. RINVOQ [Suspect]
     Active Substance: UPADACITINIB
     Dates: start: 20220201, end: 20220607
  37. STELARA [Suspect]
     Active Substance: USTEKINUMAB
     Indication: Axial spondyloarthritis
     Dates: start: 20220617, end: 20230430
  38. STELARA [Suspect]
     Active Substance: USTEKINUMAB
     Route: 065
     Dates: start: 20220617, end: 20230430
  39. STELARA [Suspect]
     Active Substance: USTEKINUMAB
     Route: 065
     Dates: start: 20220617, end: 20230430
  40. STELARA [Suspect]
     Active Substance: USTEKINUMAB
     Dates: start: 20220617, end: 20230430

REACTIONS (1)
  - Knee arthroplasty [Unknown]

NARRATIVE: CASE EVENT DATE: 20231103
